FAERS Safety Report 6996825-9 (Version None)
Quarter: 2010Q3

REPORT INFORMATION
  Report Type: 
  Country: None (occurrence: None)
  Receive Date: 20100918
  Receipt Date: 20090707
  Transmission Date: 20110219
  Serious: No
  Sender: FDA-Public Use
  Company Number: US-WYE-H10073609

PATIENT
  Sex: Female

DRUGS (16)
  1. PREMPHASE 14/14 [Suspect]
     Indication: MENSTRUATION IRREGULAR
     Dosage: 1TABLET DAILY; UNSPECIFIED STRENGTH
     Route: 048
     Dates: start: 19980512
  2. LITHIUM CARBONATE [Concomitant]
  3. ABILIFY [Concomitant]
  4. LISINOPRIL [Concomitant]
  5. METFORMIN [Concomitant]
  6. VERAPAMIL [Concomitant]
  7. CLONAZEPAM [Concomitant]
  8. SPIRIVA [Concomitant]
  9. GABAPENTIN [Concomitant]
  10. SIMVASTATIN [Concomitant]
  11. LEXAPRO [Concomitant]
  12. AMITRIPTYLINE HCL [Concomitant]
  13. VESICARE [Concomitant]
  14. OMEPRAZOLE [Concomitant]
  15. DOCUSATE [Concomitant]
  16. FLEXERIL [Concomitant]

REACTIONS (2)
  - INAPPROPRIATE SCHEDULE OF DRUG ADMINISTRATION [None]
  - VAGINAL HAEMORRHAGE [None]
